FAERS Safety Report 17203117 (Version 1)
Quarter: 2019Q4

REPORT INFORMATION
  Report Type: Report from Study
  Country: US (occurrence: US)
  Receive Date: 20191226
  Receipt Date: 20191226
  Transmission Date: 20200122
  Serious: Yes (Other)
  Sender: FDA-Public Use
  Company Number: US-GLAXOSMITHKLINE-2019-TSO02743-US

PATIENT
  Sex: Female

DRUGS (4)
  1. NIRAPARIB [Suspect]
     Active Substance: NIRAPARIB
     Dosage: 200 MG, Q AM
  2. NIRAPARIB [Suspect]
     Active Substance: NIRAPARIB
     Dosage: 200 MG, Q AM
  3. NIRAPARIB [Suspect]
     Active Substance: NIRAPARIB
     Dosage: 200 MG, QD
     Route: 048
     Dates: start: 20190730
  4. NIRAPARIB [Suspect]
     Active Substance: NIRAPARIB
     Indication: OVARIAN CANCER
     Dosage: 300 MG, QD
     Dates: start: 20190718, end: 20190729

REACTIONS (11)
  - Temperature intolerance [Unknown]
  - Tremor [Recovered/Resolved]
  - Abdominal distension [Unknown]
  - Pancreatic disorder [Unknown]
  - Myalgia [Unknown]
  - Abdominal pain [Not Recovered/Not Resolved]
  - Vomiting [Unknown]
  - Dizziness [Not Recovered/Not Resolved]
  - Decreased appetite [Unknown]
  - Fatigue [Recovered/Resolved]
  - Diabetes mellitus [Unknown]
